FAERS Safety Report 22614124 (Version 2)
Quarter: 2023Q2

REPORT INFORMATION
  Report Type: Spontaneous
  Country: US (occurrence: US)
  Receive Date: 20230619
  Receipt Date: 20230623
  Transmission Date: 20230722
  Serious: No
  Sender: FDA-Public Use
  Company Number: US-002147023-NVSC2023US138812

PATIENT
  Sex: Female

DRUGS (1)
  1. ESTRADIOL [Suspect]
     Active Substance: ESTRADIOL
     Indication: Menopause
     Dosage: 0.025 MG, QW
     Route: 062

REACTIONS (6)
  - Menopausal symptoms [Unknown]
  - Hot flush [Not Recovered/Not Resolved]
  - Brain fog [Not Recovered/Not Resolved]
  - Mood altered [Not Recovered/Not Resolved]
  - Arthritis [Not Recovered/Not Resolved]
  - Product availability issue [Unknown]
